FAERS Safety Report 6621095-0 (Version None)
Quarter: 2010Q1

REPORT INFORMATION
  Report Type: 
  Country: None (occurrence: None)
  Receive Date: 20100309
  Receipt Date: 20100301
  Transmission Date: 20100710
  Serious: Yes (Hospitalization)
  Sender: FDA-Public Use
  Company Number: B0637673A

PATIENT
  Age: 51 Year
  Sex: Female

DRUGS (7)
  1. PAROXETINE HYDROCHLORIDE [Suspect]
     Dosage: 30MG PER DAY
     Route: 048
  2. FLUVOXAMINE MALEATE [Suspect]
     Dosage: 50MG PER DAY
     Route: 048
  3. AMOXAPINE [Suspect]
     Dosage: 50MG PER DAY
     Route: 048
  4. ETHYL LOFLAZEPATE [Suspect]
     Dosage: 1MG PER DAY
     Route: 048
  5. LITHIUM CARBONATE [Suspect]
     Dosage: 200MG PER DAY
     Route: 048
  6. SERTRALINE HYDROCHLORIDE [Suspect]
     Dosage: 25MG PER DAY
     Route: 048
  7. SERTRALINE HYDROCHLORIDE [Suspect]
     Dosage: 50MG PER DAY
     Route: 048

REACTIONS (8)
  - ANXIETY [None]
  - APATHY [None]
  - BREAST ENLARGEMENT [None]
  - DEPRESSION [None]
  - DIZZINESS [None]
  - DRUG INEFFECTIVE [None]
  - FEELING ABNORMAL [None]
  - GALACTORRHOEA [None]
